FAERS Safety Report 4491907-8 (Version None)
Quarter: 2004Q4

REPORT INFORMATION
  Report Type: 
  Country: None (occurrence: None)
  Receive Date: 20041029
  Receipt Date: 20041029
  Transmission Date: 20050328
  Serious: Yes (Hospitalization)
  Sender: FDA-Public Use
  Company Number: None

PATIENT
  Age: 61 Year
  Sex: Male

DRUGS (9)
  1. TRAZODONE HCL [Suspect]
  2. BACTRIM [Suspect]
     Indication: PNEUMONIA
  3. TRAZODONE -DESERYL- [Concomitant]
  4. LEXAPRO [Concomitant]
  5. AMBIEN [Concomitant]
  6. HYDROXYZINE -VISTARIL- [Concomitant]
  7. PROPOXYPHENE NAPSYLATE -DARVOCET- [Concomitant]
  8. REGLAN [Concomitant]
  9. QUININE SULFATE [Suspect]

REACTIONS (2)
  - CONFUSIONAL STATE [None]
  - HYPOGLYCAEMIA [None]
